FAERS Safety Report 6781162-8 (Version None)
Quarter: 2010Q2

REPORT INFORMATION
  Report Type: 
  Country: None (occurrence: None)
  Receive Date: 20100616
  Receipt Date: 20100531
  Transmission Date: 20101027
  Serious: Yes (Life-Threatening, Hospitalization, Other)
  Sender: FDA-Public Use
  Company Number: 2010-00574

PATIENT
  Age: 59 Year
  Sex: Male

DRUGS (4)
  1. SIMVASTATIN [Suspect]
     Indication: DRUG USE FOR UNKNOWN INDICATION
     Dosage: 20 MG (1 IN 1 D), ORAL
     Route: 048
  2. FUSIDIC ACID [Suspect]
     Indication: ARTHRITIS BACTERIAL
     Dosage: 500 MG (3 IN 1 D)
  3. CLARITHROMYCIN [Concomitant]
  4. GLICLAZIDE [Concomitant]

REACTIONS (7)
  - ALANINE AMINOTRANSFERASE INCREASED [None]
  - ASPARTATE AMINOTRANSFERASE INCREASED [None]
  - BLOOD CREATINE PHOSPHOKINASE INCREASED [None]
  - DRUG INTERACTION [None]
  - MUSCLE INJURY [None]
  - RHABDOMYOLYSIS [None]
  - TRANSAMINASES INCREASED [None]
